FAERS Safety Report 7847000-7 (Version None)
Quarter: 2011Q4

REPORT INFORMATION
  Report Type: 
  Country: None (occurrence: None)
  Receive Date: 20111025
  Receipt Date: 20111011
  Transmission Date: 20120403
  Serious: Yes (Other)
  Sender: FDA-Public Use
  Company Number: US-GILEAD-2011-0036747

PATIENT

DRUGS (9)
  1. ERYTHROMYCIN [Concomitant]
     Dates: start: 20101103, end: 20101107
  2. EMTRICITABINE/TENOFOVIR DISOPROXIL FUMARATE [Suspect]
     Indication: HIV INFECTION
     Dates: start: 20090514, end: 20100930
  3. ALBUTEROL [Concomitant]
     Dates: start: 20101103, end: 20101109
  4. ALBUTEROL [Concomitant]
     Dates: start: 20101023, end: 20101027
  5. FOLIC ACID [Concomitant]
     Dates: start: 20101103, end: 20101116
  6. AUGMENTIN '125' [Concomitant]
     Dates: start: 20101015, end: 20101019
  7. IBRUPROFEN [Concomitant]
     Dates: start: 20101015, end: 20101017
  8. AMOXICILLIN [Concomitant]
     Dates: start: 20101023, end: 20101027
  9. PHENOBARBITAL TAB [Concomitant]
     Dates: start: 20101103, end: 20101114

REACTIONS (1)
  - ABORTION SPONTANEOUS [None]
